FAERS Safety Report 8772562 (Version 2)
Quarter: 2013Q1

REPORT INFORMATION
  Report Type: Spontaneous
  Country: US (occurrence: US)
  Receive Date: 20120905
  Receipt Date: 20130109
  Transmission Date: 20140127
  Serious: Yes (Death)
  Sender: FDA-Public Use
  Company Number: US-BAYER-2012-091159

PATIENT
  Age: 33 Year
  Sex: Female
  Weight: 117.91 kg

DRUGS (2)
  1. YASMIN [Suspect]
  2. BEXTRA [Concomitant]
     Dosage: UNK
     Dates: start: 20050427

REACTIONS (1)
  - Pulmonary embolism [Fatal]
